FAERS Safety Report 13178670 (Version 1)
Quarter: 2017Q1

REPORT INFORMATION
  Report Type: Spontaneous
  Country: US (occurrence: US)
  Receive Date: 20170202
  Receipt Date: 20170202
  Transmission Date: 20170428
  Serious: Yes (Hospitalization, Other)
  Sender: FDA-Public Use
  Company Number: US-ZYDUS-013543

PATIENT
  Age: 12 Year
  Sex: Male

DRUGS (3)
  1. MERCAPTOPURINE/MERCAPTOPURINE ANHYDROUS [Suspect]
     Active Substance: MERCAPTOPURINE
     Indication: CHEMOTHERAPY
     Route: 048
  2. VINCRISTINE [Suspect]
     Active Substance: VINCRISTINE
     Indication: CHEMOTHERAPY
     Dosage: MONTHLY PULSES OF VINCRISTINE
     Route: 065
  3. METHOTREXATE. [Suspect]
     Active Substance: METHOTREXATE
     Indication: CHEMOTHERAPY
     Route: 065

REACTIONS (11)
  - Retinal infiltrates [Recovered/Resolved]
  - Seizure [Unknown]
  - Cytomegalovirus chorioretinitis [Recovered/Resolved with Sequelae]
  - Febrile neutropenia [Unknown]
  - Cystoid macular oedema [Unknown]
  - Photophobia [Recovered/Resolved]
  - Leukoencephalopathy [Unknown]
  - Retinal haemorrhage [Recovered/Resolved]
  - Immune recovery uveitis [Unknown]
  - Cataract subcapsular [Recovered/Resolved]
  - Lung consolidation [Unknown]
